FAERS Safety Report 10086813 (Version 1)
Quarter: 2014Q2

REPORT INFORMATION
  Report Type: Spontaneous
  Country: US (occurrence: US)
  Receive Date: 20140418
  Receipt Date: 20140418
  Transmission Date: 20141212
  Serious: Yes (Hospitalization, Disabling)
  Sender: FDA-Public Use
  Company Number: US-VIIV HEALTHCARE LIMITED-A1069636A

PATIENT
  Sex: Female

DRUGS (1)
  1. TIVICAY [Suspect]
     Indication: HIV INFECTION
     Dosage: 50MG PER DAY
     Route: 048

REACTIONS (3)
  - Rash maculo-papular [Unknown]
  - Urticaria [Unknown]
  - Pruritus [Unknown]
